FAERS Safety Report 7422552-X (Version None)
Quarter: 2011Q2

REPORT INFORMATION
  Report Type: 
  Country: None (occurrence: None)
  Receive Date: 20110419
  Receipt Date: 20110407
  Transmission Date: 20111010
  Serious: Yes (Other)
  Sender: FDA-Public Use
  Company Number: US-CEPHALON-2009010588

PATIENT
  Sex: Male
  Weight: 70 kg

DRUGS (1)
  1. PROVIGIL [Suspect]
     Indication: NARCOLEPSY
     Route: 048
     Dates: start: 19990101

REACTIONS (11)
  - DIARRHOEA [None]
  - AGITATION [None]
  - TREMOR [None]
  - NERVOUSNESS [None]
  - SYNCOPE [None]
  - BACK PAIN [None]
  - VOMITING [None]
  - NAUSEA [None]
  - ANXIETY [None]
  - HEADACHE [None]
  - MALAISE [None]
